FAERS Safety Report 12618248 (Version 1)
Quarter: 2016Q3

REPORT INFORMATION
  Report Type: Spontaneous
  Country: US (occurrence: US)
  Receive Date: 20160803
  Receipt Date: 20160803
  Transmission Date: 20161109
  Serious: No
  Sender: FDA-Public Use
  Company Number: US-BEH-2016071641

PATIENT
  Sex: Female
  Weight: 78.5 kg

DRUGS (19)
  1. STERILE WATER [Concomitant]
     Active Substance: WATER
  2. HEPARIN [Concomitant]
     Active Substance: HEPARIN SODIUM
  3. SODIUM CHLORIDE. [Concomitant]
     Active Substance: SODIUM CHLORIDE
  4. XANAX [Concomitant]
     Active Substance: ALPRAZOLAM
  5. METHOCARBAMOL. [Concomitant]
     Active Substance: METHOCARBAMOL
  6. PROVENTIL [Concomitant]
     Active Substance: ALBUTEROL
  7. VITAMIN D                          /00107901/ [Concomitant]
     Active Substance: ERGOCALCIFEROL
  8. NEXIUM [Concomitant]
     Active Substance: ESOMEPRAZOLE MAGNESIUM
  9. CATHFLO ACTIVASE [Concomitant]
     Active Substance: ALTEPLASE
  10. DIPHENHYDRAMINE. [Concomitant]
     Active Substance: DIPHENHYDRAMINE
  11. DALIRESP [Concomitant]
     Active Substance: ROFLUMILAST
  12. LMX                                /00033401/ [Concomitant]
  13. DUONEB [Concomitant]
     Active Substance: ALBUTEROL SULFATE\IPRATROPIUM BROMIDE
  14. ZEMAIRA [Suspect]
     Active Substance: .ALPHA.1-PROTEINASE INHIBITOR HUMAN
     Indication: ALPHA-1 ANTI-TRYPSIN DEFICIENCY
     Dosage: 60 MG/KG, QW
     Route: 042
     Dates: start: 20080808
  15. OXYCODONE [Concomitant]
     Active Substance: OXYCODONE
  16. SYMBICORT [Concomitant]
     Active Substance: BUDESONIDE\FORMOTEROL FUMARATE DIHYDRATE
  17. NORMAL SALINE [Concomitant]
     Active Substance: SODIUM CHLORIDE
  18. ROBAXIN [Concomitant]
     Active Substance: METHOCARBAMOL
  19. EPIPEN [Concomitant]
     Active Substance: EPINEPHRINE

REACTIONS (1)
  - Sinus disorder [Unknown]
